FAERS Safety Report 9363181 (Version 2)
Quarter: 2013Q4

REPORT INFORMATION
  Report Type: Spontaneous
  Country: US (occurrence: None)
  Receive Date: 20130620
  Receipt Date: 20131021
  Transmission Date: 20140711
  Serious: Yes (Death, Hospitalization)
  Sender: FDA-Public Use
  Company Number: 2013SGN00361

PATIENT
  Age: 79 Year
  Sex: Female

DRUGS (12)
  1. ADCETRIS (BRENTUXIMAB VEDOTIN) INJECTION [Suspect]
     Indication: ANAPLASTIC LARGE-CELL LYMPHOMA
     Route: 042
     Dates: start: 201304, end: 201304
  2. ALPRAZOLAM [Concomitant]
  3. CARVEDILOL [Concomitant]
  4. FUROSEMIDE [Concomitant]
  5. LEVOTHYROXINE [Concomitant]
  6. LIDODERM [Concomitant]
  7. METOCLOPRAMIDE [Concomitant]
  8. OMEPRAZOLE [Concomitant]
  9. OXYCODONE [Concomitant]
  10. RENEXA [Concomitant]
  11. SIMVASTATIN [Concomitant]
  12. VITAMIN D3 [Concomitant]

REACTIONS (8)
  - Diarrhoea [None]
  - Urinary tract infection [None]
  - Neutropenia [None]
  - Asthenia [None]
  - Fatigue [None]
  - Decreased appetite [None]
  - Dehydration [None]
  - Hyponatraemia [None]
